FAERS Safety Report 21690944 (Version 1)
Quarter: 2022Q4

REPORT INFORMATION
  Report Type: Report from Study
  Country: US (occurrence: US)
  Receive Date: 20221207
  Receipt Date: 20221207
  Transmission Date: 20230113
  Serious: Yes (Hospitalization, Other)
  Sender: FDA-Public Use
  Company Number: US-BoehringerIngelheim-2022-BI-199503

PATIENT
  Age: 60 Year
  Sex: Female
  Weight: 74.8 kg

DRUGS (20)
  1. OFEV [Suspect]
     Active Substance: NINTEDANIB
     Indication: Product used for unknown indication
     Dates: start: 2021
  2. OFEV [Suspect]
     Active Substance: NINTEDANIB
     Dates: start: 2022, end: 20221018
  3. IMODIUM [Suspect]
     Active Substance: LOPERAMIDE HYDROCHLORIDE
     Indication: Product used for unknown indication
     Dosage: UNKNOWN
     Dates: end: 2022
  4. IMODIUM [Suspect]
     Active Substance: LOPERAMIDE HYDROCHLORIDE
     Indication: Product used for unknown indication
  5. TYVASO [Suspect]
     Active Substance: TREPROSTINIL
     Indication: Pulmonary arterial hypertension
     Dosage: FORM: INHALATION GAS
     Route: 055
     Dates: start: 20210831
  6. TYVASO [Suspect]
     Active Substance: TREPROSTINIL
     Dosage: 1 BREATH?FORM: INHALATION GAS
     Route: 055
     Dates: start: 2022, end: 2022
  7. TYVASO [Suspect]
     Active Substance: TREPROSTINIL
     Dosage: 11 BREATHS?FORM: INHALATION GAS
     Route: 055
     Dates: start: 2022, end: 2022
  8. TYVASO [Suspect]
     Active Substance: TREPROSTINIL
     Dosage: 11 BREATHS?FORM: INHALATION GAS
     Route: 055
     Dates: start: 2022
  9. DILTIAZEM [Concomitant]
     Active Substance: DILTIAZEM
     Indication: Product used for unknown indication
  10. DILTIAZEM [Concomitant]
     Active Substance: DILTIAZEM
  11. DILTIAZEM [Concomitant]
     Active Substance: DILTIAZEM
  12. TADALAFIL [Concomitant]
     Active Substance: TADALAFIL
     Indication: Product used for unknown indication
  13. TADALAFIL [Concomitant]
     Active Substance: TADALAFIL
  14. TADALAFIL [Concomitant]
     Active Substance: TADALAFIL
  15. ELIQUIS [Concomitant]
     Active Substance: APIXABAN
     Indication: Product used for unknown indication
  16. ELIQUIS [Concomitant]
     Active Substance: APIXABAN
  17. ELIQUIS [Concomitant]
     Active Substance: APIXABAN
  18. ELIQUIS [Concomitant]
     Active Substance: APIXABAN
  19. ELIQUIS [Concomitant]
     Active Substance: APIXABAN
  20. ELIQUIS [Concomitant]
     Active Substance: APIXABAN

REACTIONS (9)
  - Gastric haemorrhage [Unknown]
  - Dyspepsia [Not Recovered/Not Resolved]
  - Gastroenteritis viral [Not Recovered/Not Resolved]
  - Flatulence [Not Recovered/Not Resolved]
  - Diarrhoea [Not Recovered/Not Resolved]
  - Nausea [Not Recovered/Not Resolved]
  - Abdominal pain upper [Not Recovered/Not Resolved]
  - Constipation [Not Recovered/Not Resolved]
  - Abdominal discomfort [Recovered/Resolved]

NARRATIVE: CASE EVENT DATE: 20220101
